FAERS Safety Report 9671431 (Version 4)
Quarter: 2014Q1

REPORT INFORMATION
  Report Type: Spontaneous
  Country: GB (occurrence: GB)
  Receive Date: 20131106
  Receipt Date: 20140209
  Transmission Date: 20141002
  Serious: Yes (Disabling, Other)
  Sender: FDA-Public Use
  Company Number: GB-PFIZER INC-2013313201

PATIENT
  Age: 29 Year
  Sex: Male
  Weight: 65 kg

DRUGS (2)
  1. SUMATRIPTAN SUCCINATE [Suspect]
     Indication: MIGRAINE
     Dosage: 50 MG, AS NEEDED
     Route: 048
     Dates: start: 20131002, end: 20131012
  2. PARACETAMOL [Concomitant]
     Dosage: UNK
     Route: 065

REACTIONS (15)
  - Mycobacterium abscessus infection [Not Recovered/Not Resolved]
  - Aggression [Unknown]
  - Irritability [Unknown]
  - Anxiety [Unknown]
  - Agitation [Unknown]
  - Fatigue [Not Recovered/Not Resolved]
  - Insomnia [Not Recovered/Not Resolved]
  - Pain [Not Recovered/Not Resolved]
  - Decreased appetite [Unknown]
  - Nausea [Unknown]
  - Condition aggravated [Unknown]
  - Product substitution issue [Unknown]
  - Drug ineffective [Unknown]
  - Acne [Not Recovered/Not Resolved]
  - Acne cystic [Not Recovered/Not Resolved]
